FAERS Safety Report 21084996 (Version 1)
Quarter: 2022Q3

REPORT INFORMATION
  Report Type: Spontaneous
  Country: US (occurrence: US)
  Receive Date: 20220714
  Receipt Date: 20220714
  Transmission Date: 20221026
  Serious: No
  Sender: FDA-Public Use
  Company Number: US-SANOFI-01180836

PATIENT
  Age: 62 Year
  Sex: Male

DRUGS (1)
  1. SOLIQUA 100/33 [Suspect]
     Active Substance: INSULIN GLARGINE\LIXISENATIDE
     Dosage: 60 UNITS PRIOR TO FIRST MEAL AND 20 UNITS AT BEDTIME BID

REACTIONS (1)
  - Inappropriate schedule of product administration [Unknown]
